FAERS Safety Report 21786353 (Version 1)
Quarter: 2022Q4

REPORT INFORMATION
  Report Type: Spontaneous
  Country: JP (occurrence: JP)
  Receive Date: 20221228
  Receipt Date: 20221228
  Transmission Date: 20230113
  Serious: Yes (Hospitalization, Other)
  Sender: FDA-Public Use
  Company Number: JP-ASTELLAS-2022JP018837

PATIENT
  Age: 76 Year
  Sex: Female
  Weight: 40 kg

DRUGS (1)
  1. ZOLPIDEM TARTRATE [Suspect]
     Active Substance: ZOLPIDEM TARTRATE
     Indication: Product used for unknown indication
     Dosage: 5MGXABOUT 100 TABLETS, UNKNOWN FREQ.
     Route: 048
     Dates: start: 20221217

REACTIONS (3)
  - Altered state of consciousness [Recovering/Resolving]
  - Vomiting [Recovering/Resolving]
  - Intentional overdose [Unknown]

NARRATIVE: CASE EVENT DATE: 20221217
